FAERS Safety Report 16056809 (Version 1)
Quarter: 2019Q1

REPORT INFORMATION
  Report Type: Spontaneous
  Country: JP (occurrence: JP)
  Receive Date: 20190311
  Receipt Date: 20190311
  Transmission Date: 20190418
  Serious: Yes (Hospitalization, Other)
  Sender: FDA-Public Use
  Company Number: PHJP2019JP002933

PATIENT
  Sex: Female

DRUGS (1)
  1. ZYKADIA [Suspect]
     Active Substance: CERITINIB
     Indication: NON-SMALL CELL LUNG CANCER
     Dosage: 150 MG, QD
     Route: 048
     Dates: start: 201805

REACTIONS (3)
  - Malignant neoplasm progression [Not Recovered/Not Resolved]
  - Non-small cell lung cancer [Not Recovered/Not Resolved]
  - Appendicitis [Not Recovered/Not Resolved]
